FAERS Safety Report 4517845-X (Version None)
Quarter: 2004Q4

REPORT INFORMATION
  Report Type: 
  Country: None (occurrence: None)
  Receive Date: 20041130
  Receipt Date: 20041116
  Transmission Date: 20050328
  Serious: Yes (Other)
  Sender: FDA-Public Use
  Company Number: 2004094488

PATIENT
  Age: 69 Year
  Sex: Male

DRUGS (2)
  1. DETROL LA [Suspect]
     Dosage: ORAL
     Route: 047
  2. FLAGYL [Concomitant]

REACTIONS (1)
  - PERIPHERAL SENSORY NEUROPATHY [None]
